FAERS Safety Report 24567083 (Version 5)
Quarter: 2025Q2

REPORT INFORMATION
  Report Type: Report from Study
  Country: US (occurrence: US)
  Receive Date: 20241030
  Receipt Date: 20250611
  Transmission Date: 20250717
  Serious: Yes (Other)
  Sender: BAUSCH AND LOMB
  Company Number: US-002147023-NVSC2023US212985

PATIENT
  Age: 80 Year
  Sex: Female

DRUGS (3)
  1. XIIDRA [Suspect]
     Active Substance: LIFITEGRAST
     Indication: Off label use
     Route: 047
     Dates: start: 20230526
  2. XIIDRA [Suspect]
     Active Substance: LIFITEGRAST
     Indication: Dry eye
     Route: 047
     Dates: start: 20230713, end: 20230804
  3. SUSTAIN [Concomitant]
     Indication: Product used for unknown indication
     Route: 065

REACTIONS (24)
  - Blindness [Unknown]
  - Blindness unilateral [Unknown]
  - Suicidal ideation [Unknown]
  - Heart rate increased [Unknown]
  - Dizziness [Unknown]
  - Anxiety [Unknown]
  - Sleep deficit [Unknown]
  - Insomnia [Unknown]
  - Balance disorder [Unknown]
  - Feeling abnormal [Unknown]
  - Confusional state [Unknown]
  - Visual impairment [Unknown]
  - Pain [Unknown]
  - Memory impairment [Unknown]
  - Dry eye [Unknown]
  - Eye disorder [Unknown]
  - Dyspnoea [Unknown]
  - Eye irritation [Unknown]
  - Headache [Unknown]
  - Product use issue [Unknown]
  - Off label use [Unknown]
  - Product packaging quantity issue [Unknown]
  - Inappropriate schedule of product administration [Unknown]
  - Extra dose administered [Unknown]

NARRATIVE: CASE EVENT DATE: 20230713
